FAERS Safety Report 20942791 (Version 1)
Quarter: 2022Q2

REPORT INFORMATION
  Report Type: Spontaneous
  Country: LB (occurrence: LB)
  Receive Date: 20220610
  Receipt Date: 20220610
  Transmission Date: 20220720
  Serious: Yes (Other)
  Sender: FDA-Public Use
  Company Number: LB-ASTELLAS-2022US020225

PATIENT
  Sex: Male

DRUGS (2)
  1. BENDAMUSTINE HYDROCHLORIDE [Suspect]
     Active Substance: BENDAMUSTINE HYDROCHLORIDE
     Indication: Hodgkin^s disease nodular sclerosis recurrent
     Dosage: (6 CYCLES)
     Route: 042
     Dates: start: 2017
  2. BRENTUXIMAB VEDOTIN [Suspect]
     Active Substance: BRENTUXIMAB VEDOTIN
     Indication: Hodgkin^s disease nodular sclerosis recurrent
     Route: 065
     Dates: start: 2017

REACTIONS (3)
  - Pneumonia cytomegaloviral [Unknown]
  - Pneumocystis jirovecii pneumonia [Unknown]
  - Opportunistic infection [Unknown]

NARRATIVE: CASE EVENT DATE: 20170101
